FAERS Safety Report 6224069-7 (Version None)
Quarter: 2009Q2

REPORT INFORMATION
  Report Type: 
  Country: None (occurrence: None)
  Receive Date: 20090612
  Receipt Date: 20090309
  Transmission Date: 20091009
  Serious: No
  Sender: FDA-Public Use
  Company Number: US-ABBOTT-09P-163-0561347-00

PATIENT
  Sex: Female
  Weight: 68.1 kg

DRUGS (1)
  1. HUMIRA [Suspect]
     Indication: CROHN'S DISEASE
     Route: 058
     Dates: start: 20090101

REACTIONS (7)
  - BACK PAIN [None]
  - DRY SKIN [None]
  - INJECTION SITE HAEMATOMA [None]
  - PRURITUS [None]
  - ROAD TRAFFIC ACCIDENT [None]
  - SCRATCH [None]
  - WRONG TECHNIQUE IN DRUG USAGE PROCESS [None]
